FAERS Safety Report 7203524-7 (Version None)
Quarter: 2010Q4

REPORT INFORMATION
  Report Type: 
  Country: None (occurrence: None)
  Receive Date: 20101230
  Receipt Date: 20101227
  Transmission Date: 20110411
  Serious: Yes (Hospitalization, Other)
  Sender: FDA-Public Use
  Company Number: IT-BRISTOL-MYERS SQUIBB COMPANY-15423395

PATIENT
  Age: 80 Year
  Sex: Male

DRUGS (6)
  1. COUMADIN [Suspect]
     Indication: CARDIAC VALVE PROSTHESIS USER
     Dosage: 1 DF=1 POSOLOGIC UNIT,INTERRUPTED ON 20-OCT-10.
     Dates: start: 20060101
  2. ZESTRIL [Concomitant]
  3. PARIET [Concomitant]
     Dosage: 1 DF=1 POSOLOGIC UNIT.
  4. CASODEX [Concomitant]
     Dosage: 1 DF=1 POSOLOGIC UNIT
  5. DILATREND [Concomitant]
     Dosage: 1 DF=1.5 POSOLOGIC UNIT,25 MG TABS
  6. LASIX [Concomitant]
     Dosage: 1 DF=1 POSOLOGIC UNIT,25 MG TABS

REACTIONS (2)
  - CEREBRAL HAEMORRHAGE [None]
  - HEAD INJURY [None]
